FAERS Safety Report 5552399-0 (Version None)
Quarter: 2007Q4

REPORT INFORMATION
  Report Type: 
  Country: None (occurrence: None)
  Receive Date: 20071212
  Receipt Date: 20070615
  Transmission Date: 20080405
  Serious: No
  Sender: FDA-Public Use
  Company Number: US-AMGEN-KDL229906

PATIENT
  Sex: Female

DRUGS (3)
  1. ENBREL [Suspect]
     Indication: RHEUMATOID ARTHRITIS
     Dates: start: 20070326
  2. PLAQUENIL [Concomitant]
     Dates: start: 19950101
  3. METHOTREXATE [Concomitant]
     Route: 048
     Dates: start: 20060101

REACTIONS (5)
  - ASTHENOPIA [None]
  - BACK PAIN [None]
  - HEADACHE [None]
  - MUSCLE SPASMS [None]
  - SENSATION OF HEAVINESS [None]
